FAERS Safety Report 5259209-X (Version None)
Quarter: 2007Q1

REPORT INFORMATION
  Report Type: 
  Country: None (occurrence: None)
  Receive Date: 20070308
  Receipt Date: 20070226
  Transmission Date: 20070707
  Serious: Yes (Other)
  Sender: FDA-Public Use
  Company Number: PHEH2007US02436

PATIENT
  Age: 49 Year
  Sex: Female
  Weight: 67.12 kg

DRUGS (2)
  1. ESTRADERM [Suspect]
     Indication: MENOPAUSAL SYMPTOMS
     Dosage: 0.5 MG, UNK
     Route: 062
  2. PREMARIN [Suspect]
     Indication: MENOPAUSAL SYMPTOMS
     Dosage: 0.625 MG, UNK
     Route: 048
     Dates: start: 19910101, end: 20060101

REACTIONS (32)
  - ASTHENIA [None]
  - BARIUM ENEMA NORMAL [None]
  - BIOPSY BREAST ABNORMAL [None]
  - BLADDER DISORDER [None]
  - BLADDER REPAIR [None]
  - BREAST CANCER [None]
  - CERVICAL DYSPLASIA [None]
  - CHEMOTHERAPY [None]
  - CONSTIPATION [None]
  - CYSTOCELE [None]
  - DEPRESSION [None]
  - DERMAL CYST [None]
  - ERYTHEMA [None]
  - FEAR [None]
  - FIBROCYSTIC BREAST DISEASE [None]
  - HUMAN PAPILLOMA VIRUS TEST POSITIVE [None]
  - HYPERTENSION [None]
  - INSOMNIA [None]
  - LAXATIVE ABUSE [None]
  - MALIGNANT BREAST LUMP REMOVAL [None]
  - MENTAL DISORDER [None]
  - OSTEOPOROSIS [None]
  - PAIN IN EXTREMITY [None]
  - RADIATION SKIN INJURY [None]
  - RADIOTHERAPY [None]
  - SEBACEOUS CYST EXCISION [None]
  - SKIN EXFOLIATION [None]
  - SMEAR CERVIX ABNORMAL [None]
  - TOE DEFORMITY [None]
  - UNEVALUABLE EVENT [None]
  - VULVOVAGINAL MYCOTIC INFECTION [None]
  - WEIGHT INCREASED [None]
